FAERS Safety Report 18056818 (Version 1)
Quarter: 2020Q3

REPORT INFORMATION
  Report Type: Spontaneous
  Country: NL (occurrence: NL)
  Receive Date: 20200723
  Receipt Date: 20200723
  Transmission Date: 20201103
  Serious: Yes (Hospitalization)
  Sender: FDA-Public Use
  Company Number: NL-ABBVIE-20K-114-3492418-00

PATIENT
  Age: 20 Year
  Sex: Male

DRUGS (2)
  1. NELARABINE [Concomitant]
     Active Substance: NELARABINE
     Indication: T-CELL TYPE ACUTE LEUKAEMIA
  2. VENETOCLAX. [Suspect]
     Active Substance: VENETOCLAX
     Indication: T-CELL TYPE ACUTE LEUKAEMIA
     Route: 048

REACTIONS (4)
  - Unevaluable event [Unknown]
  - Pericardial effusion [Unknown]
  - Dyspnoea [Unknown]
  - Pulmonary oedema [Unknown]
